FAERS Safety Report 8120716-3 (Version None)
Quarter: 2012Q1

REPORT INFORMATION
  Report Type: 
  Country: None (occurrence: None)
  Receive Date: 20120207
  Receipt Date: 20120130
  Transmission Date: 20120608
  Serious: Yes (Hospitalization, Other)
  Sender: FDA-Public Use
  Company Number: US-RB-036913-12

PATIENT
  Sex: Female

DRUGS (2)
  1. SUBOXONE [Suspect]
     Route: 060
     Dates: end: 20120116
  2. SUBOXONE [Suspect]
     Indication: DRUG DEPENDENCE
     Dosage: 24 MG TAPERED DOWN TO 4 MG DAILY
     Route: 060
     Dates: start: 20110801

REACTIONS (8)
  - ABDOMINAL MASS [None]
  - DRUG WITHDRAWAL SYNDROME [None]
  - WRONG TECHNIQUE IN DRUG USAGE PROCESS [None]
  - INTESTINAL OBSTRUCTION [None]
  - GASTROINTESTINAL INFECTION [None]
  - RASH [None]
  - ABDOMINAL PAIN [None]
  - OEDEMA PERIPHERAL [None]
